FAERS Safety Report 4822181-8 (Version None)
Quarter: 2005Q4

REPORT INFORMATION
  Report Type: 
  Country: None (occurrence: None)
  Receive Date: 20051103
  Receipt Date: 20051022
  Transmission Date: 20060501
  Serious: Yes (Other)
  Sender: FDA-Public Use
  Company Number: 2005146143

PATIENT
  Age: 1 Year
  Sex: Female
  Weight: 9.9791 kg

DRUGS (1)
  1. SUDAFED PE (PHENYLEPHRINE) [Suspect]
     Indication: ACCIDENTAL EXPOSURE
     Dosage: 4 TABLETS ONCE, ORAL
     Route: 048
     Dates: start: 20051022, end: 20051022

REACTIONS (2)
  - ACCIDENTAL DRUG INTAKE BY CHILD [None]
  - HEART RATE INCREASED [None]
